FAERS Safety Report 17576738 (Version 5)
Quarter: 2021Q1

REPORT INFORMATION
  Report Type: Spontaneous
  Country: US (occurrence: US)
  Receive Date: 20200324
  Receipt Date: 20210225
  Transmission Date: 20210419
  Serious: Yes (Death, Other)
  Sender: FDA-Public Use
  Company Number: US-ACORDA-ACO_164125_2020

PATIENT
  Age: 72 Year
  Sex: Male

DRUGS (6)
  1. INBRIJA [Suspect]
     Active Substance: LEVODOPA
     Indication: ON AND OFF PHENOMENON
     Dosage: 2 CAPSULES, PRN (NOT TO EXCEED 5 DOSES A DAY)
     Dates: start: 20200303
  2. ROPINIROLE. [Concomitant]
     Active Substance: ROPINIROLE
     Indication: PRODUCT USED FOR UNKNOWN INDICATION
     Dosage: UNK
     Route: 065
  3. SELEGILINE [Concomitant]
     Active Substance: SELEGILINE
     Indication: PRODUCT USED FOR UNKNOWN INDICATION
     Dosage: 5 MG TWICE A DAY
     Route: 065
  4. GLYCOPYRROLATE. [Concomitant]
     Active Substance: GLYCOPYRROLATE
     Indication: PRODUCT USED FOR UNKNOWN INDICATION
     Dosage: UNK
     Route: 065
  5. CARBIDOPA LEVODOPA [Concomitant]
     Active Substance: CARBIDOPA\LEVODOPA
     Indication: PRODUCT USED FOR UNKNOWN INDICATION
     Dosage: 25/100
     Route: 065
  6. INBRIJA [Suspect]
     Active Substance: LEVODOPA
     Indication: PARKINSON^S DISEASE

REACTIONS (10)
  - Death [Fatal]
  - Cardiac pacemaker insertion [Unknown]
  - Device delivery system issue [Unknown]
  - Device use issue [Unknown]
  - Incorrect dose administered [Unknown]
  - Cough [Unknown]
  - Product dose omission issue [Unknown]
  - Product cleaning inadequate [Unknown]
  - Product residue present [Unknown]
  - Sputum discoloured [Unknown]

NARRATIVE: CASE EVENT DATE: 202007
